FAERS Safety Report 9186838 (Version 2)
Quarter: 2013Q3

REPORT INFORMATION
  Report Type: Spontaneous
  Country: JO (occurrence: JO)
  Receive Date: 20130325
  Receipt Date: 20130829
  Transmission Date: 20140515
  Serious: Yes (Death)
  Sender: FDA-Public Use
  Company Number: JO-CELGENEUS-088-21880-13032228

PATIENT
  Age: 61 Year
  Sex: Female

DRUGS (1)
  1. REVLIMID [Suspect]
     Indication: PLASMA CELL MYELOMA
     Dosage: 10 MILLIGRAM
     Route: 048

REACTIONS (1)
  - Plasma cell myeloma [Fatal]
